FAERS Safety Report 21102011 (Version 2)
Quarter: 2022Q3

REPORT INFORMATION
  Report Type: Spontaneous
  Country: HN (occurrence: HN)
  Receive Date: 20220719
  Receipt Date: 20220809
  Transmission Date: 20221027
  Serious: Yes (Other)
  Sender: FDA-Public Use
  Company Number: HN-PFIZER INC-PV202200025739

PATIENT
  Age: 75 Year
  Sex: Female

DRUGS (7)
  1. PRISTIQ EXTENDED-RELEASE [Suspect]
     Active Substance: DESVENLAFAXINE SUCCINATE
     Dosage: 50 MG, 1X/DAY
  2. JARDIANCE [Concomitant]
     Active Substance: EMPAGLIFLOZIN
     Indication: Diabetes mellitus
     Dosage: 1 DF, DAILY
  3. TRESIBA [Concomitant]
     Active Substance: INSULIN DEGLUDEC
     Indication: Diabetes mellitus
     Dosage: 12 IU, 1X/DAY
  4. NEURONTIN [Concomitant]
     Active Substance: GABAPENTIN
     Indication: Neuropathy peripheral
     Dosage: 1 DF, DAILY (IN THE AFTERNOON)
  5. JANUVIA [Concomitant]
     Active Substance: SITAGLIPTIN PHOSPHATE
     Indication: Diabetes mellitus
     Dosage: 1 DF, DAILY
  6. EUKENE [Concomitant]
     Indication: Blood pressure abnormal
     Dosage: (40/25) 1 DF, DAILY
  7. ELIQUIS [Concomitant]
     Active Substance: APIXABAN
     Indication: Blood disorder
     Dosage: 1 DF, DAILY

REACTIONS (10)
  - Intervertebral disc protrusion [Unknown]
  - Renal failure [Unknown]
  - Gait disturbance [Unknown]
  - Fall [Unknown]
  - Rib fracture [Unknown]
  - Hypoglycaemia [Unknown]
  - Syncope [Unknown]
  - Visual impairment [Unknown]
  - Limb injury [Unknown]
  - Depression [Unknown]

NARRATIVE: CASE EVENT DATE: 20220531
